FAERS Safety Report 9678829 (Version 1)
Quarter: 2013Q4

REPORT INFORMATION
  Report Type: Spontaneous
  Country: FR (occurrence: FR)
  Receive Date: 20131108
  Receipt Date: 20131108
  Transmission Date: 20140711
  Serious: Yes (Hospitalization)
  Sender: FDA-Public Use
  Company Number: FR-GLAXOSMITHKLINE-B0938098A

PATIENT
  Age: 55 Year
  Sex: Male

DRUGS (12)
  1. SERETIDE [Suspect]
     Indication: PRODUCT USED FOR UNKNOWN INDICATION
     Route: 055
     Dates: start: 20130610
  2. OFLOCET [Suspect]
     Indication: BACTERIAL INFECTION
     Dosage: 200MG PER DAY
     Route: 048
     Dates: start: 20130926, end: 20131003
  3. MYFORTIC [Suspect]
     Indication: PROPHYLAXIS AGAINST TRANSPLANT REJECTION
     Dosage: 720MG PER DAY
     Route: 048
     Dates: start: 20130723, end: 20131003
  4. PREVISCAN (FLUINDIONE) [Suspect]
     Indication: PRODUCT USED FOR UNKNOWN INDICATION
     Dosage: 15MG PER DAY
     Route: 048
     Dates: start: 20131001
  5. CORDARONE [Suspect]
     Indication: PRODUCT USED FOR UNKNOWN INDICATION
     Dosage: 200MG FIVE TIMES PER WEEK
     Route: 048
     Dates: start: 20130723
  6. LOPRESSOR [Suspect]
     Indication: PRODUCT USED FOR UNKNOWN INDICATION
     Dosage: 200MG PER DAY
     Route: 048
     Dates: start: 20130610
  7. CALCIPARINE [Suspect]
     Indication: PRODUCT USED FOR UNKNOWN INDICATION
     Dosage: .5ML THREE TIMES PER DAY
     Route: 058
     Dates: start: 20130926, end: 20131003
  8. EUPANTOL [Suspect]
     Indication: PRODUCT USED FOR UNKNOWN INDICATION
     Dosage: 40MG PER DAY
     Route: 048
     Dates: start: 20130610
  9. PENTACARINAT [Suspect]
     Indication: PRODUCT USED FOR UNKNOWN INDICATION
     Dosage: 1UNIT WEEKLY
     Route: 055
     Dates: start: 20130605
  10. LASILIX [Suspect]
     Indication: PRODUCT USED FOR UNKNOWN INDICATION
     Dosage: 1.75TAB PER DAY
     Route: 048
     Dates: start: 20130527
  11. NEORAL [Suspect]
     Indication: PRODUCT USED FOR UNKNOWN INDICATION
     Dosage: 120MG PER DAY
     Route: 048
     Dates: start: 20130723
  12. TRIATEC [Suspect]
     Indication: PRODUCT USED FOR UNKNOWN INDICATION
     Dosage: 2.5MG PER DAY
     Route: 048
     Dates: start: 20130411, end: 20131010

REACTIONS (4)
  - Thrombocytopenia [Recovered/Resolved]
  - Blood blister [Recovered/Resolved]
  - Thrombocytopenic purpura [Recovered/Resolved]
  - Subcutaneous haematoma [Recovered/Resolved]
